FAERS Safety Report 17733677 (Version 1)
Quarter: 2020Q2

REPORT INFORMATION
  Report Type: Spontaneous
  Country: US (occurrence: US)
  Receive Date: 20200430
  Receipt Date: 20200430
  Transmission Date: 20200714
  Serious: Yes (Life-Threatening, Disabling, Other)
  Sender: FDA-Public Use
  Company Number: None

PATIENT
  Age: 25 Year
  Sex: Male
  Weight: 90 kg

DRUGS (1)
  1. CIPROFLOXACIN. [Suspect]
     Active Substance: CIPROFLOXACIN
     Indication: URINARY TRACT INFECTION
     Dosage: ?          QUANTITY:1 TABLET(S);?
     Route: 048
     Dates: start: 20200329, end: 20200331

REACTIONS (19)
  - Paraesthesia [None]
  - Tachycardia [None]
  - Muscle spasms [None]
  - Neuropathy peripheral [None]
  - Dyspnoea [None]
  - Anxiety [None]
  - Fear [None]
  - Swelling [None]
  - Hypoaesthesia [None]
  - Fall [None]
  - Tendon pain [None]
  - Panic attack [None]
  - Neuralgia [None]
  - Muscular weakness [None]
  - Chest pain [None]
  - Vomiting [None]
  - Confusional state [None]
  - Tremor [None]
  - Gait disturbance [None]

NARRATIVE: CASE EVENT DATE: 20200331
